FAERS Safety Report 13352948 (Version 1)
Quarter: 2017Q1

REPORT INFORMATION
  Report Type: Spontaneous
  Country: JP (occurrence: JP)
  Receive Date: 20170320
  Receipt Date: 20170320
  Transmission Date: 20170429
  Serious: No
  Sender: FDA-Public Use
  Company Number: JP-ROCHE-1908020

PATIENT
  Sex: Female

DRUGS (1)
  1. TAMIFLU [Suspect]
     Active Substance: OSELTAMIVIR PHOSPHATE
     Indication: ANTIVIRAL PROPHYLAXIS
     Dosage: MOST RECENT DOSE:07/MAR/2017
     Route: 048
     Dates: start: 20170306

REACTIONS (2)
  - Maternal exposure during pregnancy [Unknown]
  - Influenza [Unknown]

NARRATIVE: CASE EVENT DATE: 20170308
